FAERS Safety Report 8488233-9 (Version None)
Quarter: 2012Q3

REPORT INFORMATION
  Report Type: 
  Country: None (occurrence: None)
  Receive Date: 20120705
  Receipt Date: 20120628
  Transmission Date: 20120928
  Serious: Yes (Hospitalization)
  Sender: FDA-Public Use
  Company Number: US-BAYER-201034616NA

PATIENT
  Age: 26 Year
  Sex: Female
  Weight: 48 kg

DRUGS (4)
  1. MIDOL [Concomitant]
     Dosage: UNK
     Dates: start: 20000101
  2. SOLODYN [Concomitant]
     Indication: ACNE
     Dosage: UNK
     Dates: start: 20081101, end: 20090301
  3. IRON SULFATETHIAMIN COMPOUND TAB [Concomitant]
     Indication: ANAEMIA
     Dosage: 325 MG, QOD
     Route: 048
  4. YAZ [Suspect]
     Indication: ACNE
     Dosage: UNK UNK, QD
     Route: 048
     Dates: start: 20090301, end: 20091101

REACTIONS (3)
  - PULMONARY INFARCTION [None]
  - PULMONARY EMBOLISM [None]
  - PLEURAL EFFUSION [None]
